FAERS Safety Report 8785090 (Version 1)
Quarter: 2012Q4

REPORT INFORMATION
  Report Type: 
  Country: US (occurrence: US)
  Receive Date: 20120914
  Receipt Date: 20120914
  Transmission Date: 20130627
  Serious: Yes (Other)
  Sender: FDA-Public Use
  Company Number: US-PURDUE-USA-2012-0092255

PATIENT
  Sex: Female

DRUGS (1)
  1. BUTRANS [Suspect]
     Indication: PRODUCT USED FOR UNKNOWN INDICATION
     Dosage: 20 mcg/hr, daily
     Route: 062

REACTIONS (4)
  - Chronic obstructive pulmonary disease [Unknown]
  - Chest discomfort [Unknown]
  - Dyspnoea [Unknown]
  - Wheezing [Unknown]
